FAERS Safety Report 12398444 (Version 6)
Quarter: 2016Q4

REPORT INFORMATION
  Report Type: Spontaneous
  Country: US (occurrence: US)
  Receive Date: 20160524
  Receipt Date: 20161129
  Transmission Date: 20170207
  Serious: Yes (Death, Hospitalization)
  Sender: FDA-Public Use
  Company Number: US-ACTELION-A-US2016-135764

PATIENT
  Age: 61 Year
  Sex: Female
  Weight: 81.63 kg

DRUGS (2)
  1. UPTRAVI [Suspect]
     Active Substance: SELEXIPAG
     Dosage: 200 MCG, QD
     Route: 048
  2. UPTRAVI [Suspect]
     Active Substance: SELEXIPAG
     Indication: PULMONARY HYPERTENSION
     Dosage: 200 MCG, BID
     Route: 048
     Dates: start: 20160422

REACTIONS (16)
  - Diarrhoea [Unknown]
  - Nausea [Unknown]
  - Condition aggravated [Unknown]
  - Liver function test increased [Recovering/Resolving]
  - Abdominal distension [Unknown]
  - Malaise [Unknown]
  - Syncope [Unknown]
  - Abdominal pain [Unknown]
  - Hepatic cirrhosis [Recovering/Resolving]
  - Ammonia increased [Recovering/Resolving]
  - Right ventricular failure [Unknown]
  - Decreased appetite [Unknown]
  - Dyspnoea [Unknown]
  - Death [Fatal]
  - Asthenia [Unknown]
  - Dizziness [Unknown]

NARRATIVE: CASE EVENT DATE: 20160711
